FAERS Safety Report 9412719 (Version 1)
Quarter: 2013Q3

REPORT INFORMATION
  Report Type: Spontaneous
  Country: US (occurrence: US)
  Receive Date: 20130722
  Receipt Date: 20130722
  Transmission Date: 20140515
  Serious: Yes (Other)
  Sender: FDA-Public Use
  Company Number: US-PFIZER INC-2013213283

PATIENT
  Age: 75 Year
  Sex: Female
  Weight: 62.59 kg

DRUGS (3)
  1. LYRICA [Suspect]
     Indication: NEURALGIA
     Dosage: 75 MG, 2X/DAY FOR A WEEK
     Route: 048
     Dates: start: 20130717
  2. LYRICA [Suspect]
     Indication: NERVE COMPRESSION
  3. LYRICA [Suspect]
     Indication: SCIATICA

REACTIONS (5)
  - Laryngeal oedema [Unknown]
  - Laryngitis [Unknown]
  - Dysphonia [Unknown]
  - Nervousness [Unknown]
  - Somnolence [Unknown]
